FAERS Safety Report 7866895 (Version 4)
Quarter: 2015Q1

REPORT INFORMATION
  Report Type: Spontaneous
  Country: US (occurrence: US)
  Receive Date: 20110322
  Receipt Date: 20150319
  Transmission Date: 20150721
  Serious: Yes (Hospitalization)
  Sender: FDA-Public Use
  Company Number: US-BAYER-2011-022452

PATIENT
  Age: 42 Year
  Sex: Female
  Weight: 63 kg

DRUGS (1)
  1. YASMIN [Suspect]
     Active Substance: DROSPIRENONE\ETHINYL ESTRADIOL
     Indication: CONTRACEPTION
     Dosage: UNK
     Dates: start: 200109, end: 200311

REACTIONS (6)
  - Pain [None]
  - Speech disorder [None]
  - Ischaemic stroke [None]
  - Fear of disease [None]
  - Injury [None]
  - Hypoaesthesia [None]

NARRATIVE: CASE EVENT DATE: 20031123
